FAERS Safety Report 23974530 (Version 1)
Quarter: 2024Q2

REPORT INFORMATION
  Report Type: Spontaneous
  Country: US (occurrence: US)
  Receive Date: 20240614
  Receipt Date: 20240614
  Transmission Date: 20240716
  Serious: Yes (Other)
  Sender: FDA-Public Use
  Company Number: US-CATALYST PHARMACEUTICALS-US-CATA-24-00520

PATIENT
  Sex: Male
  Weight: 50.794 kg

DRUGS (3)
  1. AGAMREE [Suspect]
     Active Substance: VAMOROLONE
     Indication: Duchenne muscular dystrophy
     Dosage: 4.2 ML DAILY
     Route: 048
     Dates: start: 20240202
  2. ALBUTEROL [Concomitant]
     Active Substance: ALBUTEROL
     Indication: Product used for unknown indication
     Dosage: AS NEEDED
     Route: 065
  3. QBRELIS [Concomitant]
     Active Substance: LISINOPRIL
     Indication: Product used for unknown indication
     Dosage: 1 MG PER ML, 1 ML DAILY
     Route: 065

REACTIONS (2)
  - Syncope [Unknown]
  - Joint injury [Unknown]

NARRATIVE: CASE EVENT DATE: 20240101
